FAERS Safety Report 15513122 (Version 1)
Quarter: 2018Q4

REPORT INFORMATION
  Report Type: Spontaneous
  Country: US (occurrence: US)
  Receive Date: 20181011
  Receipt Date: 20181011
  Transmission Date: 20190205
  Serious: Yes (Death)
  Sender: FDA-Public Use
  Company Number: None

PATIENT
  Age: 53 Year
  Sex: Male

DRUGS (3)
  1. VEMLIDY [Suspect]
     Active Substance: TENOFOVIR ALAFENAMIDE FUMARATE
     Indication: INFECTION PARASITIC
     Route: 048
     Dates: start: 20180619, end: 20180929
  2. VEMLIDY [Suspect]
     Active Substance: TENOFOVIR ALAFENAMIDE FUMARATE
     Indication: INFECTION
     Route: 048
     Dates: start: 20180619, end: 20180929
  3. NEXAVAR [Concomitant]
     Active Substance: SORAFENIB
     Dates: start: 20180606, end: 20180719

REACTIONS (1)
  - Death [None]

NARRATIVE: CASE EVENT DATE: 20180929
